FAERS Safety Report 5879712-9 (Version None)
Quarter: 2008Q3

REPORT INFORMATION
  Report Type: 
  Country: None (occurrence: None)
  Receive Date: 20080912
  Receipt Date: 20080903
  Transmission Date: 20090109
  Serious: Yes (Hospitalization)
  Sender: FDA-Public Use
  Company Number: FR-MERCK-0809FRA00014

PATIENT
  Age: 80 Year
  Sex: Female
  Weight: 70 kg

DRUGS (11)
  1. SITAGLIPTIN PHOSPHATE [Suspect]
     Indication: TYPE 2 DIABETES MELLITUS
     Route: 048
     Dates: start: 20080422, end: 20080401
  2. INSULIN ASPART, BIPHASIC ISOPHANE [INJECTION] [Suspect]
     Indication: TYPE 2 DIABETES MELLITUS
     Route: 058
     Dates: end: 20080401
  3. REPAGLINIDE [Suspect]
     Indication: TYPE 2 DIABETES MELLITUS
     Route: 048
     Dates: start: 20080422, end: 20080401
  4. METFORMIN PAMOATE [Suspect]
     Indication: TYPE 2 DIABETES MELLITUS
     Route: 048
  5. ASPIRIN LYSINE [Concomitant]
     Route: 048
  6. PERINDOPRIL ARGININE [Concomitant]
     Indication: HYPERTENSION
     Route: 048
  7. CLONIDINE HYDROCHLORIDE [Concomitant]
     Indication: HYPERTENSION
     Route: 048
  8. INDAPAMIDE [Concomitant]
     Indication: HYPERTENSION
     Route: 048
  9. ATORVASTATIN CALCIUM [Concomitant]
     Indication: DYSLIPIDAEMIA
     Route: 048
  10. CLORAZEPATE DIPOTASSIUM [Concomitant]
     Route: 048
  11. ZOPICLONE [Concomitant]
     Route: 048

REACTIONS (4)
  - APHASIA [None]
  - DRUG INTERACTION [None]
  - HYPOGLYCAEMIC COMA [None]
  - OFF LABEL USE [None]
